FAERS Safety Report 10156909 (Version 1)
Quarter: 2014Q2

REPORT INFORMATION
  Report Type: Spontaneous
  Country: US (occurrence: None)
  Receive Date: 20140506
  Receipt Date: 20140506
  Transmission Date: 20141212
  Serious: Yes (Other)
  Sender: FDA-Public Use
  Company Number: None

PATIENT
  Sex: Female
  Weight: 80.29 kg

DRUGS (2)
  1. INSULIN GLARGINE [Suspect]
     Indication: TYPE 1 DIABETES MELLITUS
     Dosage: 15 TO 20 UNITS, AT NIGHT
     Dates: start: 20130515, end: 20140224
  2. ACETAMINOPHEN [Concomitant]

REACTIONS (1)
  - Skin ulcer [None]
